FAERS Safety Report 20784046 (Version 1)
Quarter: 2022Q2

REPORT INFORMATION
  Report Type: Spontaneous
  Country: GB (occurrence: GB)
  Receive Date: 20220504
  Receipt Date: 20220504
  Transmission Date: 20220721
  Serious: Yes (Hospitalization, Other)
  Sender: FDA-Public Use
  Company Number: None

PATIENT
  Age: 59 Year
  Sex: Female
  Weight: 78.4 kg

DRUGS (3)
  1. NAPROXEN [Suspect]
     Active Substance: NAPROXEN
     Indication: Product used for unknown indication
     Dosage: ONE TO BE TAKEN TWICE A DAY
     Dates: start: 20220401, end: 20220426
  2. NAPROXEN [Concomitant]
     Active Substance: NAPROXEN
     Dosage: ONE TO BE TAKEN TWICE A DAY
     Dates: start: 20220401, end: 20220426
  3. OMEPRAZOLE [Concomitant]
     Active Substance: OMEPRAZOLE
     Indication: Prophylaxis
     Dosage: ONE TO BE TAKEN EACH DAY WHILST TAKING NAPROXEN TO PROTECT STOMACH
     Dates: start: 20220401

REACTIONS (1)
  - Angioedema [Recovered/Resolved]

NARRATIVE: CASE EVENT DATE: 20220425
